FAERS Safety Report 16917312 (Version 1)
Quarter: 2019Q4

REPORT INFORMATION
  Report Type: Spontaneous
  Country: US (occurrence: US)
  Receive Date: 20191015
  Receipt Date: 20191015
  Transmission Date: 20200122
  Serious: Yes (Other)
  Sender: FDA-Public Use
  Company Number: US-ZYDUS-042023

PATIENT
  Age: 63 Year
  Sex: Female

DRUGS (12)
  1. DIHYDROERGOTAMINE MESYLATE. [Interacting]
     Active Substance: DIHYDROERGOTAMINE MESYLATE
     Indication: MIGRAINE
     Route: 042
  2. PROMETHAZINE [Interacting]
     Active Substance: PROMETHAZINE HYDROCHLORIDE
     Indication: MIGRAINE
     Route: 065
  3. AMITRIPTYLINE [Concomitant]
     Active Substance: AMITRIPTYLINE
     Indication: MIGRAINE PROPHYLAXIS
     Route: 065
  4. DULOXETINE. [Concomitant]
     Active Substance: DULOXETINE
     Indication: MIGRAINE PROPHYLAXIS
     Route: 065
  5. MORPHINE [Concomitant]
     Active Substance: MORPHINE
     Indication: MIGRAINE
     Route: 048
  6. VALPROATE SEMISODIQUE [Interacting]
     Active Substance: DIVALPROEX SODIUM
     Indication: MIGRAINE
     Route: 065
  7. LIDOCAINE. [Concomitant]
     Active Substance: LIDOCAINE
     Indication: MIGRAINE
     Route: 065
  8. KETAMINE [Interacting]
     Active Substance: KETAMINE
     Indication: MIGRAINE
     Route: 045
  9. VALPROATE SEMISODIQUE [Interacting]
     Active Substance: DIVALPROEX SODIUM
     Indication: MIGRAINE
     Route: 065
  10. ERENUMAB [Concomitant]
     Active Substance: ERENUMAB
     Indication: MIGRAINE
     Route: 065
  11. METHYLPREDNISOLONE. [Suspect]
     Active Substance: METHYLPREDNISOLONE
     Indication: MIGRAINE
     Route: 065
  12. KETAMINE [Interacting]
     Active Substance: KETAMINE
     Indication: MIGRAINE
     Dosage: UP TO 45 MG/HR
     Route: 065

REACTIONS (6)
  - Reversible cerebral vasoconstriction syndrome [Recovered/Resolved]
  - Posterior reversible encephalopathy syndrome [Recovered/Resolved]
  - Drug interaction [Recovered/Resolved]
  - Ataxia [Recovered/Resolved]
  - Visual acuity reduced [Recovered/Resolved]
  - Gait disturbance [Recovered/Resolved]
